FAERS Safety Report 24122372 (Version 3)
Quarter: 2024Q3

REPORT INFORMATION
  Report Type: Report from Study
  Country: US (occurrence: US)
  Receive Date: 20240723
  Receipt Date: 20240815
  Transmission Date: 20241017
  Serious: Yes (Hospitalization, Other)
  Sender: ABBVIE
  Company Number: US-ABBVIE-5842334

PATIENT
  Age: 69 Year
  Sex: Female
  Weight: 49 kg

DRUGS (2)
  1. HUMIRA [Suspect]
     Active Substance: ADALIMUMAB
     Indication: Psoriatic arthropathy
     Route: 058
     Dates: start: 20210825, end: 20240715
  2. BUDESONIDE [Concomitant]
     Active Substance: BUDESONIDE
     Indication: Colitis
     Route: 048

REACTIONS (15)
  - Loss of consciousness [Unknown]
  - Joint swelling [Recovered/Resolved]
  - Joint swelling [Not Recovered/Not Resolved]
  - Pruritus [Not Recovered/Not Resolved]
  - Disorientation [Unknown]
  - Hypotension [Recovered/Resolved]
  - White blood cell count increased [Unknown]
  - Pruritus [Recovered/Resolved]
  - Muscle swelling [Not Recovered/Not Resolved]
  - Erythema [Unknown]
  - Blood urea increased [Unknown]
  - Mean cell haemoglobin increased [Unknown]
  - Red blood cell count increased [Unknown]
  - Dizziness [Unknown]
  - Pain [Unknown]

NARRATIVE: CASE EVENT DATE: 20240501
